FAERS Safety Report 4698763-3 (Version None)
Quarter: 2005Q2

REPORT INFORMATION
  Report Type: 
  Country: None (occurrence: None)
  Receive Date: 20050621
  Receipt Date: 20040917
  Transmission Date: 20051028
  Serious: Yes (Other)
  Sender: FDA-Public Use
  Company Number: PHEH2004US10104

PATIENT
  Age: 91 Year
  Sex: Female

DRUGS (2)
  1. EXELON [Suspect]
     Dates: start: 20040301
  2. OXYGEN [Concomitant]

REACTIONS (4)
  - CONFUSIONAL STATE [None]
  - FATIGUE [None]
  - IMMOBILE [None]
  - OXYGEN SUPPLEMENTATION [None]
